FAERS Safety Report 16059652 (Version 4)
Quarter: 2019Q2

REPORT INFORMATION
  Report Type: Spontaneous
  Country: GR (occurrence: GR)
  Receive Date: 20190311
  Receipt Date: 20190415
  Transmission Date: 20190711
  Serious: Yes (Hospitalization)
  Sender: FDA-Public Use
  Company Number: PHHY2019GR048612

PATIENT
  Age: 79 Year
  Sex: Female

DRUGS (4)
  1. METFORMIN [Suspect]
     Active Substance: METFORMIN HYDROCHLORIDE
     Indication: DIABETES MELLITUS
     Route: 065
  2. HYDROCHLOROTHIAZIDE. [Suspect]
     Active Substance: HYDROCHLOROTHIAZIDE
     Indication: HYPERTENSION
     Route: 065
  3. TELMISARTAN. [Suspect]
     Active Substance: TELMISARTAN
     Indication: HYPERTENSION
     Route: 065
  4. GLICLAZIDE [Suspect]
     Active Substance: GLICLAZIDE
     Indication: DIABETES MELLITUS
     Route: 065

REACTIONS (9)
  - Liver abscess [Recovering/Resolving]
  - Nausea [Recovering/Resolving]
  - Blood pressure increased [Recovering/Resolving]
  - Staphylococcal infection [Recovering/Resolving]
  - Pyrexia [Recovered/Resolved]
  - Chills [Recovering/Resolving]
  - Diarrhoea [Recovering/Resolving]
  - Streptococcal infection [Recovering/Resolving]
  - Drug ineffective [Unknown]
